FAERS Safety Report 5583170-1 (Version None)
Quarter: 2008Q1

REPORT INFORMATION
  Report Type: 
  Country: None (occurrence: None)
  Receive Date: 20080103
  Receipt Date: 20080103
  Transmission Date: 20080703
  Serious: Yes (Hospitalization)
  Sender: FDA-Public Use
  Company Number: None

PATIENT
  Age: 54 Year
  Sex: Female

DRUGS (2)
  1. ETODOLAC [Suspect]
     Indication: ARTHRALGIA
     Dosage: 500MG BID PO
     Route: 048
  2. INDOMETHACIN [Suspect]
     Indication: ARTHRALGIA
     Dosage: 75MG TID PO
     Route: 048

REACTIONS (4)
  - ANAEMIA [None]
  - COLITIS ISCHAEMIC [None]
  - DUODENAL ULCER [None]
  - RECTAL HAEMORRHAGE [None]
